FAERS Safety Report 4514150-2 (Version None)
Quarter: 2004Q4

REPORT INFORMATION
  Report Type: 
  Country: None (occurrence: None)
  Receive Date: 20041129
  Receipt Date: 20041025
  Transmission Date: 20050328
  Serious: Yes (Hospitalization)
  Sender: FDA-Public Use
  Company Number: 2004AP000840

PATIENT
  Age: 86 Year
  Sex: Male

DRUGS (2)
  1. RANITIDINE HCL [Suspect]
     Dosage: 150 MG; ONCE; ORAL
     Route: 048
     Dates: start: 20041023, end: 20041023
  2. WARFARIN SODIUM [Concomitant]

REACTIONS (2)
  - ANAPHYLACTIC REACTION [None]
  - LOSS OF CONSCIOUSNESS [None]
